FAERS Safety Report 5188139-7 (Version None)
Quarter: 2006Q4

REPORT INFORMATION
  Report Type: 
  Country: None (occurrence: None)
  Receive Date: 20061221
  Receipt Date: 20060715
  Transmission Date: 20070319
  Serious: Yes (Other)
  Sender: FDA-Public Use
  Company Number: 2006AP03567

PATIENT
  Age: 24060 Day
  Sex: Female
  Weight: 57 kg

DRUGS (12)
  1. IRESSA [Suspect]
     Indication: LUNG ADENOCARCINOMA STAGE I
     Route: 048
     Dates: start: 20060614
  2. CARBOPLATIN [Concomitant]
     Dates: start: 20041209
  3. PACLITAXEL [Concomitant]
     Dates: start: 20041209
  4. OXYCONTIN [Concomitant]
     Indication: PAIN
     Route: 048
     Dates: start: 20060612, end: 20060622
  5. OXYCONTIN [Concomitant]
     Route: 048
     Dates: start: 20060622
  6. NOVAMIN [Concomitant]
     Indication: NAUSEA
     Route: 048
     Dates: start: 20060612
  7. GASMOTIN [Concomitant]
     Indication: GASTROINTESTINAL DISORDER
     Route: 048
     Dates: start: 20060612
  8. HALCION [Concomitant]
     Indication: INSOMNIA
     Route: 048
     Dates: start: 20060612
  9. GASTER [Concomitant]
     Indication: PROPHYLAXIS AGAINST GASTROINTESTINAL ULCER
     Route: 048
     Dates: start: 20060618, end: 20060627
  10. MEROPEN [Concomitant]
     Indication: INFECTION PROPHYLAXIS
     Route: 041
     Dates: start: 20060624, end: 20060705
  11. UNKNOWN DRUG (THROMBIN) [Concomitant]
     Indication: PROPHYLAXIS AGAINST GASTROINTESTINAL ULCER
     Route: 048
     Dates: start: 20060627, end: 20060702
  12. PARIET [Concomitant]
     Indication: PROPHYLAXIS AGAINST GASTROINTESTINAL ULCER
     Route: 048
     Dates: start: 20060627

REACTIONS (4)
  - DYSGEUSIA [None]
  - GASTRIC ULCER [None]
  - INFECTION [None]
  - PYREXIA [None]
